FAERS Safety Report 24766296 (Version 1)
Quarter: 2024Q4

REPORT INFORMATION
  Report Type: Spontaneous
  Country: US (occurrence: US)
  Receive Date: 20241223
  Receipt Date: 20241223
  Transmission Date: 20250115
  Serious: Yes (Death)
  Sender: PFIZER
  Company Number: US-PFIZER INC-202400328183

PATIENT
  Age: 84 Year
  Sex: Male

DRUGS (1)
  1. VYNDAMAX [Suspect]
     Active Substance: TAFAMIDIS
     Indication: Cardiac disorder
     Dosage: ONCE A DAY BY MOUTH
     Route: 048
     Dates: start: 2023

REACTIONS (3)
  - Chronic obstructive pulmonary disease [Fatal]
  - Cardiac failure [Fatal]
  - Hypoacusis [Unknown]
